FAERS Safety Report 24428102 (Version 1)
Quarter: 2024Q4

REPORT INFORMATION
  Report Type: Report from Study
  Country: US (occurrence: US)
  Receive Date: 20241011
  Receipt Date: 20241011
  Transmission Date: 20250115
  Serious: Yes (Other)
  Sender: BAYER
  Company Number: US-BAYER-2024A133445

PATIENT
  Age: 44 Year
  Sex: Female

DRUGS (1)
  1. STIVARGA [Suspect]
     Active Substance: REGORAFENIB MONOHYDRATE
     Indication: Osteosarcoma
     Dosage: 80 MG, QD
     Route: 048
     Dates: start: 20240910

REACTIONS (7)
  - Heart rate increased [Recovered/Resolved]
  - Hunger [Unknown]
  - Nausea [Unknown]
  - Fatigue [Unknown]
  - Off label use [None]
  - Pain in extremity [Not Recovered/Not Resolved]
  - Full blood count decreased [Not Recovered/Not Resolved]

NARRATIVE: CASE EVENT DATE: 20240901
